FAERS Safety Report 21029747 (Version 2)
Quarter: 2023Q2

REPORT INFORMATION
  Report Type: Spontaneous
  Country: DE (occurrence: DE)
  Receive Date: 20220630
  Receipt Date: 20230630
  Transmission Date: 20230722
  Serious: Yes (Hospitalization, Other)
  Sender: FDA-Public Use
  Company Number: DE-GW PHARMA-2022-DE-021972

PATIENT
  Sex: Male

DRUGS (33)
  1. EPIDIOLEX [Suspect]
     Active Substance: CANNABIDIOL
     Indication: Lennox-Gastaut syndrome
     Dosage: 10 MILLIGRAM/KILOGRAM/ DAY
     Route: 065
  2. EPIDIOLEX [Suspect]
     Active Substance: CANNABIDIOL
     Indication: Severe myoclonic epilepsy of infancy
     Dosage: 20 MILLIGRAM/KILOGRAM/DAY
     Route: 065
  3. CARBAMAZEPINE [Concomitant]
     Active Substance: CARBAMAZEPINE
  4. CENOBAMATE [Concomitant]
     Active Substance: CENOBAMATE
  5. ESLICARBAZEPINE ACETATE [Concomitant]
     Active Substance: ESLICARBAZEPINE ACETATE
  6. LAMOTRIGINE [Concomitant]
     Active Substance: LAMOTRIGINE
     Dosage: 5.5 MILLIGRAM/KILOGRAM/DAY
  7. PHENYTOIN [Concomitant]
     Active Substance: PHENYTOIN
  8. OXCARBAZEPINE [Concomitant]
     Active Substance: OXCARBAZEPINE
  9. LACOSAMIDE [Concomitant]
     Active Substance: LACOSAMIDE
  10. RUFINAMIDE [Concomitant]
     Active Substance: RUFINAMIDE
  11. ETHOSUXIMIDE [Concomitant]
     Active Substance: ETHOSUXIMIDE
  12. GABAPENTIN [Concomitant]
     Active Substance: GABAPENTIN
  13. METHSUXIMIDE [Concomitant]
     Active Substance: METHSUXIMIDE
  14. PREGABALIN [Concomitant]
     Active Substance: PREGABALIN
  15. BROMIDEL PLUS [Concomitant]
  16. CLOBAZAM [Concomitant]
     Active Substance: CLOBAZAM
     Dosage: 3 MILLIGRAM/DAY
  17. NITRAZEPAM [Concomitant]
     Active Substance: NITRAZEPAM
  18. PHENOBARBITAL [Concomitant]
     Active Substance: PHENOBARBITAL
  19. PRIMIDONE [Concomitant]
     Active Substance: PRIMIDONE
  20. STIRIPENTOL [Concomitant]
     Active Substance: STIRIPENTOL
  21. VIGABATRIN [Concomitant]
     Active Substance: VIGABATRIN
  22. PERAMPANEL [Concomitant]
     Active Substance: PERAMPANEL
  23. BRIVARACETAM [Concomitant]
     Active Substance: BRIVARACETAM
  24. LEVETIRACETAM [Concomitant]
     Active Substance: LEVETIRACETAM
  25. ACETAZOLAMIDE [Concomitant]
     Active Substance: ACETAZOLAMIDE
  26. SULTIAM NEURAXPHARM [Concomitant]
  27. EVEROLIMUS [Concomitant]
     Active Substance: EVEROLIMUS
  28. FELBAMATE [Concomitant]
     Active Substance: FELBAMATE
  29. FENFLURAMINE [Concomitant]
     Active Substance: FENFLURAMINE
  30. TOPIRAMATE [Concomitant]
     Active Substance: TOPIRAMATE
  31. VALPROATE [Concomitant]
     Active Substance: VALPROIC ACID
  32. ZONISAMIDE [Concomitant]
     Active Substance: ZONISAMIDE
  33. CORTICOSTEROID NOS [Concomitant]
     Active Substance: CORTICOSTEROID NOS

REACTIONS (4)
  - Tonic convulsion [Unknown]
  - Stereotypy [Unknown]
  - Anger [Unknown]
  - Walking disability [Unknown]
